FAERS Safety Report 5099613-6 (Version None)
Quarter: 2006Q3

REPORT INFORMATION
  Report Type: 
  Country: None (occurrence: None)
  Receive Date: 20060906
  Receipt Date: 20060823
  Transmission Date: 20061208
  Serious: Yes (Death)
  Sender: FDA-Public Use
  Company Number: 2006097396

PATIENT
  Age: 48 Year
  Sex: Female

DRUGS (6)
  1. XANAX [Suspect]
     Indication: DRUG USE FOR UNKNOWN INDICATION
     Dosage: TOTAL DAILY DOSE:  HALF TABLET, ORAL
     Route: 048
  2. DANTROLENE SODIUM [Suspect]
     Indication: DRUG USE FOR UNKNOWN INDICATION
     Dosage: 150 MG (DAILY), ORAL
     Route: 048
     Dates: start: 20040101
  3. ACETAMINOPHEN [Suspect]
     Indication: DRUG USE FOR UNKNOWN INDICATION
     Dosage: 1500 MG (500 MG, DAILY), ORAL
     Route: 048
  4. TRAMADOL HCL [Suspect]
     Indication: DRUG USE FOR UNKNOWN INDICATION
     Dosage: 100 MG (100 MG, 1 IN 1 D),
  5. ADENOSINE TRIPHOSPHATE (ADENOSINE TRIPHOSPHATE) [Suspect]
     Indication: DRUG USE FOR UNKNOWN INDICATION
     Dosage: ORAL
     Route: 048
  6. POLIOMYELITIS VACCINE INACTIVATED (POLIOMYELITIS VACCINE INACTIVATED) [Suspect]
     Indication: DRUG USE FOR UNKNOWN INDICATION
     Dosage: (ONCE),
     Dates: start: 20060713

REACTIONS (8)
  - DYSARTHRIA [None]
  - FATIGUE [None]
  - HAEMOGLOBIN DECREASED [None]
  - HEPATITIS FULMINANT [None]
  - METABOLIC ACIDOSIS [None]
  - RENAL FAILURE [None]
  - RHABDOMYOLYSIS [None]
  - TORTICOLLIS [None]
